FAERS Safety Report 22522361 (Version 1)
Quarter: 2023Q2

REPORT INFORMATION
  Report Type: Spontaneous
  Country: KR (occurrence: KR)
  Receive Date: 20230605
  Receipt Date: 20230605
  Transmission Date: 20230722
  Serious: Yes (Hospitalization)
  Sender: FDA-Public Use
  Company Number: KR-ORGANON-O2305KOR003276

PATIENT
  Sex: Male
  Weight: 59.7 kg

DRUGS (10)
  1. COZAAR [Suspect]
     Active Substance: LOSARTAN POTASSIUM
     Indication: Essential hypertension
     Dosage: 1 FORMULATION
     Route: 048
     Dates: start: 20181123, end: 20190129
  2. PANTOPRAZOLE SODIUM [Concomitant]
     Active Substance: PANTOPRAZOLE SODIUM
     Indication: Prophylaxis
     Dosage: 1 FORMULATION
     Route: 048
  3. PANTOPRAZOLE SODIUM [Concomitant]
     Active Substance: PANTOPRAZOLE SODIUM
     Dosage: 1 FORMULATION (ROUTE REPORTED AS VEIN)
     Route: 042
     Dates: start: 20190129, end: 20190131
  4. MAGNESIUM OXIDE [Concomitant]
     Active Substance: MAGNESIUM OXIDE
     Indication: Prophylaxis
     Dosage: 3 FORMULATION
     Route: 048
     Dates: end: 20181123
  5. ALBUTEROL SULFATE [Concomitant]
     Active Substance: ALBUTEROL SULFATE
     Indication: Prophylaxis
     Dosage: 4 FORMULATION
     Route: 050
  6. TAMSULOSIN HYDROCHLORIDE [Concomitant]
     Active Substance: TAMSULOSIN HYDROCHLORIDE
     Indication: Bladder disorder
     Dosage: 1 FORMULATION
     Route: 048
  7. TRAMADOL HYDROCHLORIDE [Concomitant]
     Active Substance: TRAMADOL HYDROCHLORIDE
     Indication: Rib fracture
     Dosage: 1 FORMULATION (ROUTE: VEIN)
     Route: 042
     Dates: start: 20190129, end: 20190131
  8. TRAMADOL HYDROCHLORIDE [Concomitant]
     Active Substance: TRAMADOL HYDROCHLORIDE
     Indication: Pain
     Dosage: 3 FORMULATION (ROUTE: VEIN)
     Route: 042
     Dates: start: 20190129, end: 20190131
  9. METOCLOPRAMIDE HYDROCHLORIDE [Concomitant]
     Active Substance: METOCLOPRAMIDE HYDROCHLORIDE
     Indication: Prophylaxis
     Dosage: 1 FORMULATION (ROUTE: VEIN)
     Route: 042
     Dates: start: 20190129, end: 20190129
  10. SILODOSIN [Concomitant]
     Active Substance: SILODOSIN
     Indication: Renal injury
     Dosage: 1 FORMULATION
     Route: 048
     Dates: start: 20190129, end: 20190201

REACTIONS (1)
  - Rib fracture [Recovered/Resolved]

NARRATIVE: CASE EVENT DATE: 20190129
